FAERS Safety Report 12690990 (Version 18)
Quarter: 2020Q1

REPORT INFORMATION
  Report Type: Spontaneous
  Country: CA (occurrence: CA)
  Receive Date: 20160826
  Receipt Date: 20200224
  Transmission Date: 20200409
  Serious: Yes (Other)
  Sender: FDA-Public Use
  Company Number: CA-ORION CORPORATION ORION PHARMA-TREX2016-1432

PATIENT
  Age: 52 Year
  Sex: Female
  Weight: 98 kg

DRUGS (40)
  1. ACTEMRA [Suspect]
     Active Substance: TOCILIZUMAB
     Route: 042
  2. PLAQUENIL [Suspect]
     Active Substance: HYDROXYCHLOROQUINE SULFATE
     Route: 048
  3. LANTUS [Concomitant]
     Active Substance: INSULIN GLARGINE
     Route: 058
  4. METFORMIN [Concomitant]
     Active Substance: METFORMIN HYDROCHLORIDE
     Route: 065
  5. ENBREL [Suspect]
     Active Substance: ETANERCEPT
     Route: 058
     Dates: end: 20110416
  6. ORENCIA [Suspect]
     Active Substance: ABATACEPT
     Indication: RHEUMATOID ARTHRITIS
     Route: 042
     Dates: start: 201104, end: 2014
  7. CALCIUM [Concomitant]
     Active Substance: CALCIUM
     Route: 065
  8. LOZIDE [Concomitant]
     Active Substance: INDAPAMIDE
     Route: 065
  9. PREDNISONE. [Concomitant]
     Active Substance: PREDNISONE
     Route: 065
  10. VITAMIN D3 [Concomitant]
     Active Substance: CHOLECALCIFEROL
     Route: 065
  11. ACTEMRA [Suspect]
     Active Substance: TOCILIZUMAB
     Route: 042
  12. ACTEMRA [Suspect]
     Active Substance: TOCILIZUMAB
     Route: 042
  13. ARAVA [Suspect]
     Active Substance: LEFLUNOMIDE
     Indication: RHEUMATOID ARTHRITIS
     Route: 048
     Dates: start: 2010
  14. ORENCIA [Suspect]
     Active Substance: ABATACEPT
     Route: 042
  15. APO-HYDROXYQUINE [Suspect]
     Active Substance: HYDROXYCHLOROQUINE SULFATE
     Indication: PRODUCT USED FOR UNKNOWN INDICATION
     Route: 048
  16. ERGOCALCIFEROL. [Concomitant]
     Active Substance: ERGOCALCIFEROL
     Route: 065
  17. METHOTREXATE (TRADE NAME UNKNOWN) [Suspect]
     Active Substance: METHOTREXATE
     Route: 048
  18. METHOTREXATE (TRADE NAME UNKNOWN) [Suspect]
     Active Substance: METHOTREXATE
     Route: 048
  19. HYDROXYCHLOROQUINE [Suspect]
     Active Substance: HYDROXYCHLOROQUINE
     Route: 048
  20. VITAMIN D [Concomitant]
     Active Substance: VITAMIN D NOS
     Route: 065
  21. NAPROXEN. [Concomitant]
     Active Substance: NAPROXEN
     Route: 065
  22. ASA ARTHRITIS STRENGTH ASPIRIN [Concomitant]
     Active Substance: ASPIRIN
     Dosage: STRENGTH: 81 MG
     Route: 065
  23. XELJANZ [Concomitant]
     Active Substance: TOFACITINIB CITRATE
     Route: 065
  24. ORENCIA [Suspect]
     Active Substance: ABATACEPT
     Route: 042
  25. HYDROXYCHLOROQUINE SULFATE. [Suspect]
     Active Substance: HYDROXYCHLOROQUINE SULFATE
     Route: 065
  26. HYDROXYCHLOROQUINE [Suspect]
     Active Substance: HYDROXYCHLOROQUINE
     Indication: RHEUMATOID ARTHRITIS
     Route: 048
     Dates: start: 2009, end: 2014
  27. NAPROXEN SODIUM. [Suspect]
     Active Substance: NAPROXEN SODIUM
     Indication: PRODUCT USED FOR UNKNOWN INDICATION
     Route: 065
  28. METHOTREXATE (TRADE NAME UNKNOWN) [Suspect]
     Active Substance: METHOTREXATE
     Route: 030
     Dates: end: 2014
  29. ENBREL [Suspect]
     Active Substance: ETANERCEPT
     Indication: RHEUMATOID ARTHRITIS
     Route: 058
     Dates: start: 2009, end: 2010
  30. ACTEMRA [Suspect]
     Active Substance: TOCILIZUMAB
     Route: 042
  31. ARAVA [Suspect]
     Active Substance: LEFLUNOMIDE
     Route: 048
  32. PLAQUENIL [Suspect]
     Active Substance: HYDROXYCHLOROQUINE SULFATE
     Indication: RHEUMATOID ARTHRITIS
     Route: 048
     Dates: start: 2009, end: 2014
  33. HYDROXYCHLOROQUINE SULFATE. [Suspect]
     Active Substance: HYDROXYCHLOROQUINE SULFATE
     Indication: PRODUCT USED FOR UNKNOWN INDICATION
     Route: 048
  34. ACETYLSALICYLIC ACID [Concomitant]
     Active Substance: ASPIRIN
     Route: 065
  35. METHOTREXATE (TRADE NAME UNKNOWN) [Suspect]
     Active Substance: METHOTREXATE
     Indication: RHEUMATOID ARTHRITIS
     Route: 048
     Dates: start: 2009, end: 2010
  36. ACTEMRA [Suspect]
     Active Substance: TOCILIZUMAB
     Indication: RHEUMATOID ARTHRITIS
     Dosage: 4-8 MG/KG
     Route: 042
  37. ACTEMRA [Suspect]
     Active Substance: TOCILIZUMAB
     Route: 042
  38. APO-LEFLUNOMIDE [Suspect]
     Active Substance: LEFLUNOMIDE
     Indication: PRODUCT USED FOR UNKNOWN INDICATION
     Route: 048
  39. NAPROSYN [Concomitant]
     Active Substance: NAPROXEN
     Dosage: AS NECESSARY
     Route: 065
  40. RAMIPRIL. [Concomitant]
     Active Substance: RAMIPRIL
     Route: 065

REACTIONS (8)
  - Drug ineffective [Not Recovered/Not Resolved]
  - Contraindicated product administered [Not Recovered/Not Resolved]
  - Interstitial lung disease [Not Recovered/Not Resolved]
  - Joint swelling [Not Recovered/Not Resolved]
  - Therapeutic product effect decreased [Not Recovered/Not Resolved]
  - Rheumatoid arthritis [Not Recovered/Not Resolved]
  - Impaired work ability [Not Recovered/Not Resolved]
  - Red blood cell sedimentation rate abnormal [Not Recovered/Not Resolved]
